FAERS Safety Report 18471764 (Version 1)
Quarter: 2020Q4

REPORT INFORMATION
  Report Type: Spontaneous
  Country: ZA (occurrence: ZA)
  Receive Date: 20201106
  Receipt Date: 20201106
  Transmission Date: 20210114
  Serious: Yes (Death, Other)
  Sender: FDA-Public Use
  Company Number: ZA-LUPIN PHARMACEUTICALS INC.-2020-08072

PATIENT
  Sex: Male

DRUGS (5)
  1. DEGRANOL [Suspect]
     Active Substance: CARBAMAZEPINE
     Indication: DEPRESSION
     Dosage: 200 MILLIGRAM, UNK
     Route: 048
     Dates: end: 20201008
  2. GLUCOPHAGE [Suspect]
     Active Substance: METFORMIN HYDROCHLORIDE
     Indication: DIABETES MELLITUS
     Dosage: 500 MILLIGRAM, UNK
     Route: 048
     Dates: end: 20201008
  3. ENAP CO [Suspect]
     Active Substance: ENALAPRIL\HYDROCHLOROTHIAZIDE
     Indication: HYPERTENSION
     Dosage: 20/12.5 MG, UNK
     Route: 048
     Dates: end: 20201008
  4. AMLODIPINE [Suspect]
     Active Substance: AMLODIPINE BESYLATE
     Indication: HYPERTENSION
     Dosage: 5 MILLIGRAM, UNK
     Route: 048
     Dates: end: 20201008
  5. CIPLA SIMVASTATIN [Suspect]
     Active Substance: SIMVASTATIN
     Indication: BLOOD CHOLESTEROL ABNORMAL
     Dosage: 20 MILLIGRAM, UNK
     Route: 048
     Dates: end: 20201008

REACTIONS (1)
  - Lung neoplasm malignant [Fatal]
